FAERS Safety Report 23137059 (Version 1)
Quarter: 2023Q4

REPORT INFORMATION
  Report Type: Spontaneous
  Country: NL (occurrence: NL)
  Receive Date: 20231102
  Receipt Date: 20231102
  Transmission Date: 20240109
  Serious: Yes (Life-Threatening)
  Sender: FDA-Public Use
  Company Number: None

PATIENT
  Age: 80 Year
  Sex: Male
  Weight: 77 kg

DRUGS (2)
  1. DABIGATRAN ETEXILATE [Suspect]
     Active Substance: DABIGATRAN ETEXILATE
     Indication: Atrial fibrillation
     Dosage: 2 DD 1
     Dates: start: 20201215, end: 20230825
  2. IDARUCIZUMAB [Concomitant]
     Active Substance: IDARUCIZUMAB
     Indication: Product used for unknown indication
     Dosage: OPLOSSING VOOR INJECTIE/INFUUS, 50 MG/ML (MILLIGRAM PER MILLILITER)

REACTIONS (3)
  - Haemoglobin decreased [Recovered/Resolved]
  - Rectal haemorrhage [Recovered/Resolved]
  - Haemodynamic instability [Recovered/Resolved]

NARRATIVE: CASE EVENT DATE: 20230825
